FAERS Safety Report 10030375 (Version 2)
Quarter: 2014Q1

REPORT INFORMATION
  Report Type: Spontaneous
  Country: None (occurrence: US)
  Receive Date: 20140323
  Receipt Date: 20140323
  Transmission Date: 20141002
  Serious: No
  Sender: FDA-Public Use
  Company Number: US-ALLERGAN-1313227US

PATIENT
  Sex: Female

DRUGS (2)
  1. LATISSE 0.03% [Suspect]
     Indication: GROWTH OF EYELASHES
     Dosage: 2 GTT, QHS
     Route: 061
  2. SYNTHROID [Concomitant]
     Indication: HYPOTHYROIDISM

REACTIONS (4)
  - Visual impairment [Unknown]
  - Photopsia [Unknown]
  - Ocular hyperaemia [Unknown]
  - Lacrimation increased [Unknown]
